FAERS Safety Report 7203610-1 (Version None)
Quarter: 2010Q4

REPORT INFORMATION
  Report Type: 
  Country: None (occurrence: None)
  Receive Date: 20101228
  Receipt Date: 20101228
  Transmission Date: 20110411
  Serious: Yes (Death, Life-Threatening, Hospitalization)
  Sender: FDA-Public Use
  Company Number: None

PATIENT
  Sex: Female
  Weight: 79.3795 kg

DRUGS (1)
  1. AVANDIA [Suspect]
     Indication: DIABETES MELLITUS
     Dosage: 8MG 1 TIME DAILY PO
     Route: 048
     Dates: start: 19980501, end: 20070107

REACTIONS (2)
  - MYOCARDIAL INFARCTION [None]
  - RENAL FAILURE ACUTE [None]
